FAERS Safety Report 8547236-6 (Version None)
Quarter: 2012Q3

REPORT INFORMATION
  Report Type: 
  Country: None (occurrence: None)
  Receive Date: 20120727
  Receipt Date: 20120413
  Transmission Date: 20120928
  Serious: No
  Sender: FDA-Public Use
  Company Number: US-ASTRAZENECA-2012SE14180

PATIENT
  Age: 51 Year
  Sex: Male
  Weight: 88.5 kg

DRUGS (8)
  1. SEROQUEL [Suspect]
     Indication: BIPOLAR I DISORDER
     Route: 048
  2. SEROQUEL [Suspect]
     Route: 048
  3. SEROQUEL [Suspect]
     Route: 048
  4. SEROQUEL [Suspect]
     Dosage: 200 MGS TO 300 MGS
     Route: 048
  5. SEROQUEL [Suspect]
     Route: 048
  6. NEURONTIN [Concomitant]
  7. SEROQUEL [Suspect]
     Route: 048
  8. WELLBUTRIN [Concomitant]
     Indication: DEPRESSION

REACTIONS (6)
  - NIGHTMARE [None]
  - FEELING ABNORMAL [None]
  - IRRITABILITY [None]
  - INTENTIONAL DRUG MISUSE [None]
  - INSOMNIA [None]
  - PAIN IN EXTREMITY [None]
